FAERS Safety Report 15929920 (Version 4)
Quarter: 2019Q1

REPORT INFORMATION
  Report Type: Spontaneous
  Country: PT (occurrence: PT)
  Receive Date: 20190206
  Receipt Date: 20190321
  Transmission Date: 20190417
  Serious: Yes (Other)
  Sender: FDA-Public Use
  Company Number: PT-009507513-1901PRT011247

PATIENT
  Age: 45 Year
  Sex: Male

DRUGS (5)
  1. SOVALDI [Suspect]
     Active Substance: SOFOSBUVIR
     Indication: CHRONIC HEPATITIS C
     Dosage: UNK
     Route: 065
  2. ETRAVIRINE [Concomitant]
     Active Substance: ETRAVIRINE
     Dosage: UNK
  3. RIBAVIRIN. [Suspect]
     Active Substance: RIBAVIRIN
     Indication: CHRONIC HEPATITIS C
     Dosage: UNK
     Route: 065
  4. DARUNAVIR (+) RITONAVIR [Concomitant]
     Active Substance: DARUNAVIR\RITONAVIR
     Dosage: UNK
  5. DOLUTEGRAVIR [Concomitant]
     Active Substance: DOLUTEGRAVIR
     Dosage: UNK

REACTIONS (2)
  - Drug ineffective [Unknown]
  - Hepatitis C [Unknown]
